FAERS Safety Report 8346540-4 (Version None)
Quarter: 2012Q2

REPORT INFORMATION
  Report Type: 
  Country: None (occurrence: None)
  Receive Date: 20120509
  Receipt Date: 20120426
  Transmission Date: 20120825
  Serious: Yes (Other)
  Sender: FDA-Public Use
  Company Number: PHHY2012EC038501

PATIENT
  Sex: Female

DRUGS (4)
  1. ASPIRIN [Concomitant]
     Dosage: 81 MG, ONE TABLET DAILY
  2. EXFORGE HCT [Suspect]
     Indication: HYPERTENSION
     Dosage: 1 DF, DAILY
     Route: 048
     Dates: start: 20111216
  3. DIOVAN [Suspect]
     Indication: HYPERTENSION
     Dosage: UNK UKN, UNK
     Route: 048
     Dates: end: 20111215
  4. ATENOLOL [Suspect]
     Dosage: 50 MG, ONE TABLET DAILY
     Dates: end: 20111225

REACTIONS (3)
  - PEMPHIGOID [None]
  - SKIN ODOUR ABNORMAL [None]
  - ACNE [None]
